FAERS Safety Report 4710591-9 (Version None)
Quarter: 2005Q3

REPORT INFORMATION
  Report Type: 
  Country: None (occurrence: None)
  Receive Date: 20050711
  Receipt Date: 20050620
  Transmission Date: 20060218
  Serious: Yes (Hospitalization)
  Sender: FDA-Public Use
  Company Number: PHBS2005AT08769

PATIENT
  Age: 69 Year
  Sex: Female

DRUGS (5)
  1. ZOMETA [Suspect]
     Indication: MULTIPLE MYELOMA
     Dosage: 4 MG, QMO
     Route: 042
     Dates: start: 20010912, end: 20050501
  2. AREDIA [Suspect]
     Indication: MULTIPLE MYELOMA
     Dates: start: 20010112
  3. ARANESP [Concomitant]
     Indication: ANAEMIA
     Dosage: 150 MG QW TO EVERY TWO WEEKS
     Dates: start: 20040505, end: 20050626
  4. CONCOR [Concomitant]
     Indication: HYPERTENSION
     Dosage: 2.5 MG, QD
  5. VOLTAREN [Concomitant]
     Dosage: 50 MG, PRN

REACTIONS (2)
  - ASEPTIC NECROSIS BONE [None]
  - SURGERY [None]
